FAERS Safety Report 12402304 (Version 2)
Quarter: 2016Q2

REPORT INFORMATION
  Report Type: Spontaneous
  Country: US (occurrence: US)
  Receive Date: 20160525
  Receipt Date: 20160527
  Transmission Date: 20160815
  Serious: No
  Sender: FDA-Public Use
  Company Number: US-SA-2016SA025141

PATIENT
  Age: 23 Year
  Sex: Female

DRUGS (3)
  1. LANTUS [Suspect]
     Active Substance: INSULIN GLARGINE
     Indication: DIABETES MELLITUS
     Route: 065
  2. LANTUS [Suspect]
     Active Substance: INSULIN GLARGINE
     Indication: DIABETES MELLITUS
     Route: 065
  3. CEREZYME [Concomitant]
     Active Substance: IMIGLUCERASE
     Route: 065

REACTIONS (3)
  - Hyperglycaemia [Unknown]
  - Weight decreased [Unknown]
  - Fatigue [Unknown]
